FAERS Safety Report 6187473-1 (Version None)
Quarter: 2009Q2

REPORT INFORMATION
  Report Type: 
  Country: None (occurrence: None)
  Receive Date: 20090508
  Receipt Date: 20090427
  Transmission Date: 20091009
  Serious: Yes (Hospitalization, Other)
  Sender: FDA-Public Use
  Company Number: GXKR2009JP05115

PATIENT
  Age: 48 Year
  Sex: Female

DRUGS (2)
  1. RIBAVIRIN [Suspect]
     Indication: HEPATITIS C
     Dosage: 600 MG, 400 MG, 80 UG, 50 UG,
     Dates: start: 20060801
  2. PEG-INTRON [Suspect]
     Indication: HEPATITIS C
     Dosage: 100 UG
     Dates: start: 20060801

REACTIONS (4)
  - ANAEMIA [None]
  - COLITIS ISCHAEMIC [None]
  - NEUTROPHIL COUNT DECREASED [None]
  - WHITE BLOOD CELL COUNT DECREASED [None]
